FAERS Safety Report 6764324-5 (Version None)
Quarter: 2010Q2

REPORT INFORMATION
  Report Type: 
  Country: None (occurrence: None)
  Receive Date: 20100610
  Receipt Date: 20100128
  Transmission Date: 20101027
  Serious: No
  Sender: FDA-Public Use
  Company Number: US-BRISTOL-MYERS SQUIBB COMPANY-14958896

PATIENT
  Sex: Female

DRUGS (1)
  1. MONOPRIL [Suspect]

REACTIONS (1)
  - BLOOD PRESSURE INCREASED [None]
